FAERS Safety Report 10963532 (Version 1)
Quarter: 2015Q1

REPORT INFORMATION
  Report Type: Spontaneous
  Country: US (occurrence: None)
  Receive Date: 20150226
  Receipt Date: 20150226
  Transmission Date: 20150721
  Serious: Yes (Other)
  Sender: FDA-Public Use
  Company Number: TPA2012A03050

PATIENT
  Age: 59 Year
  Sex: Male
  Weight: 124.74 kg

DRUGS (7)
  1. GEMFIBROZIL (GEMFIBROZIL) [Concomitant]
     Active Substance: GEMFIBROZIL
  2. GLYBURIDE/METFORMIN  (METFORMIN HYDROCHLORIDE, GLIBENCLAMIDE) [Concomitant]
  3. DIABETA [Concomitant]
     Active Substance: GLYBURIDE
  4. JANUVIA [Concomitant]
     Active Substance: SITAGLIPTIN PHOSPHATE
  5. METFORMIN [Concomitant]
     Active Substance: METFORMIN HYDROCHLORIDE
  6. HYDROCHLOROTHIAZIDE. [Concomitant]
     Active Substance: HYDROCHLOROTHIAZIDE
  7. ACTOS [Suspect]
     Active Substance: PIOGLITAZONE HYDROCHLORIDE
     Indication: TYPE 2 DIABETES MELLITUS
     Dosage: 1 IN 1 D
     Dates: start: 20031202, end: 2011

REACTIONS (1)
  - Bladder cancer [None]

NARRATIVE: CASE EVENT DATE: 2006
